FAERS Safety Report 8208258-8 (Version None)
Quarter: 2012Q1

REPORT INFORMATION
  Report Type: 
  Country: None (occurrence: None)
  Receive Date: 20120314
  Receipt Date: 20120309
  Transmission Date: 20120608
  Serious: Yes (Other)
  Sender: FDA-Public Use
  Company Number: PHHY2012CA005502

PATIENT
  Sex: Male

DRUGS (1)
  1. CLOZARIL [Suspect]
     Indication: SCHIZOPHRENIA
     Dates: start: 20111012

REACTIONS (5)
  - NAUSEA [None]
  - VOMITING [None]
  - PAIN [None]
  - UPPER LIMB FRACTURE [None]
  - FALL [None]
